FAERS Safety Report 10880158 (Version 4)
Quarter: 2015Q2

REPORT INFORMATION
  Report Type: Spontaneous
  Country: US (occurrence: US)
  Receive Date: 20150302
  Receipt Date: 20150512
  Transmission Date: 20150821
  Serious: Yes (Hospitalization, Other)
  Sender: FDA-Public Use
  Company Number: US-PFIZER INC-2015071387

PATIENT
  Age: 78 Year
  Sex: Male
  Weight: 98 kg

DRUGS (12)
  1. SUTENT [Suspect]
     Active Substance: SUNITINIB MALATE
     Indication: RENAL CELL CARCINOMA
     Dosage: 37.5 MG, 1X/DAY
     Route: 048
     Dates: start: 20141231, end: 201502
  2. LASIX [Concomitant]
     Active Substance: FUROSEMIDE
     Indication: FLUID RETENTION
  3. CITALOPRAM [Concomitant]
     Active Substance: CITALOPRAM HYDROBROMIDE
     Indication: ANXIETY
     Dosage: 20 MG, DAILY
     Route: 048
     Dates: start: 2011
  4. CITALOPRAM [Concomitant]
     Active Substance: CITALOPRAM HYDROBROMIDE
     Dosage: BACK TO FULL DOSE, 20 MG DAILY
     Dates: start: 201502
  5. VITAMIN C [Concomitant]
     Active Substance: ASCORBIC ACID
     Dosage: OFF AND ON
  6. CALCIUM [Concomitant]
     Active Substance: CALCIUM
     Indication: BONE DECALCIFICATION
     Dosage: UNK, DAILY
     Route: 048
  7. LABETALOL [Concomitant]
     Active Substance: LABETALOL\LABETALOL HYDROCHLORIDE
     Indication: HYPERTENSION
     Dosage: 100 MG, 2X/DAY
     Route: 048
  8. AMLODIPINE [Concomitant]
     Active Substance: AMLODIPINE BESYLATE
     Indication: HYPERTENSION
     Dosage: 5 MG, DAILY
     Route: 048
  9. CITALOPRAM [Concomitant]
     Active Substance: CITALOPRAM HYDROBROMIDE
     Dosage: REDUCED DOSE
  10. LASIX [Concomitant]
     Active Substance: FUROSEMIDE
     Indication: HYPERTENSION
     Dosage: 40 MG, EVERY OTHER DAY
     Route: 048
  11. HYDRALAZINE [Concomitant]
     Active Substance: HYDRALAZINE HYDROCHLORIDE
     Indication: BLOOD PRESSURE
     Dosage: 100 MG, 3X/DAY
     Route: 048
  12. VITAMIN D [Concomitant]
     Active Substance: CHOLECALCIFEROL
     Dosage: UNK, AS NEEDED

REACTIONS (14)
  - Abdominal distension [Recovering/Resolving]
  - Fluid retention [Unknown]
  - Peripheral swelling [Recovering/Resolving]
  - Feeling abnormal [Unknown]
  - Second primary malignancy [Unknown]
  - Pruritus [Unknown]
  - Night sweats [Recovered/Resolved]
  - Skin exfoliation [Unknown]
  - Skin cancer [Unknown]
  - Decreased appetite [Unknown]
  - Weight increased [Recovered/Resolved]
  - Pneumonia [Recovering/Resolving]
  - Blister [Not Recovered/Not Resolved]
  - Faeces soft [Recovering/Resolving]

NARRATIVE: CASE EVENT DATE: 20141231
